FAERS Safety Report 19589252 (Version 1)
Quarter: 2021Q3

REPORT INFORMATION
  Report Type: Spontaneous
  Country: SE (occurrence: SE)
  Receive Date: 20210721
  Receipt Date: 20210721
  Transmission Date: 20211014
  Serious: Yes (Hospitalization)
  Sender: FDA-Public Use
  Company Number: SE-PFIZER INC-2021844197

PATIENT
  Age: 42 Year
  Sex: Male

DRUGS (1)
  1. XANOR [Suspect]
     Active Substance: ALPRAZOLAM
     Dosage: 10 DF
     Dates: start: 202106, end: 202106

REACTIONS (4)
  - Overdose [Recovered/Resolved]
  - Depressed level of consciousness [Recovered/Resolved]
  - Intentional self-injury [Recovered/Resolved]
  - Toxicity to various agents [Recovered/Resolved]

NARRATIVE: CASE EVENT DATE: 202106
